FAERS Safety Report 16854406 (Version 4)
Quarter: 2020Q4

REPORT INFORMATION
  Report Type: Spontaneous
  Country: US (occurrence: US)
  Receive Date: 20190926
  Receipt Date: 20201209
  Transmission Date: 20210113
  Serious: Yes (Hospitalization, Other)
  Sender: FDA-Public Use
  Company Number: US-GILEAD-2019-0429596

PATIENT
  Age: 30 Year
  Sex: Female
  Weight: 76.19 kg

DRUGS (55)
  1. TRUVADA [Suspect]
     Active Substance: EMTRICITABINE\TENOFOVIR DISOPROXIL FUMARATE
     Dosage: UNK
     Route: 065
     Dates: start: 20110921, end: 201611
  2. CALCIUM ACETATE. [Concomitant]
     Active Substance: CALCIUM ACETATE
  3. CLARITHROMYCIN. [Concomitant]
     Active Substance: CLARITHROMYCIN
  4. INDOMETHACIN [INDOMETACIN] [Concomitant]
     Active Substance: INDOMETHACIN
  5. LEVAQUIN [Concomitant]
     Active Substance: LEVOFLOXACIN
  6. PROMETHAZINE [Concomitant]
     Active Substance: PROMETHAZINE HYDROCHLORIDE
  7. RIFABUTIN. [Concomitant]
     Active Substance: RIFABUTIN
  8. SULFAMETHOXAZOLE [Concomitant]
     Active Substance: SULFAMETHOXAZOLE
  9. TRAMADOL. [Concomitant]
     Active Substance: TRAMADOL
  10. VALTREX [Concomitant]
     Active Substance: VALACYCLOVIR HYDROCHLORIDE
  11. ZYRTEC [Concomitant]
     Active Substance: CETIRIZINE HYDROCHLORIDE
  12. DAPSONE. [Concomitant]
     Active Substance: DAPSONE
  13. METHYLPREDNISOLONE. [Concomitant]
     Active Substance: METHYLPREDNISOLONE
  14. PREDNISONE. [Concomitant]
     Active Substance: PREDNISONE
  15. ZOFRAN [Concomitant]
     Active Substance: ONDANSETRON HYDROCHLORIDE
  16. TRUVADA [Suspect]
     Active Substance: EMTRICITABINE\TENOFOVIR DISOPROXIL FUMARATE
     Indication: HIV INFECTION
     Dosage: UNK
     Route: 048
     Dates: start: 2013, end: 2017
  17. ATOVAQUONE. [Concomitant]
     Active Substance: ATOVAQUONE
  18. CYCLOBENZAPRINE. [Concomitant]
     Active Substance: CYCLOBENZAPRINE
  19. FLAGYL [Concomitant]
     Active Substance: METRONIDAZOLE\METRONIDAZOLE HYDROCHLORIDE
  20. NORTREL [LEVONORGESTREL] [Concomitant]
  21. TRUVADA [Suspect]
     Active Substance: EMTRICITABINE\TENOFOVIR DISOPROXIL FUMARATE
     Dosage: UNK
     Route: 065
     Dates: start: 20110921, end: 20160222
  22. PREZISTA [Concomitant]
     Active Substance: DARUNAVIR ETHANOLATE
  23. NORVASC [Concomitant]
     Active Substance: AMLODIPINE BESYLATE
  24. CLINDAMYCIN. [Concomitant]
     Active Substance: CLINDAMYCIN
  25. ETHAMBUTOL HCL [Concomitant]
     Active Substance: ETHAMBUTOL HYDROCHLORIDE
  26. FAMOTIDINE. [Concomitant]
     Active Substance: FAMOTIDINE
  27. PENICILLIN [PENICILLIN NOS] [Concomitant]
     Active Substance: PENICILLIN
  28. SENNA S [Concomitant]
     Active Substance: DOCUSATE SODIUM\SENNA LEAF
  29. VITAMIN B1 [Concomitant]
     Active Substance: THIAMINE HYDROCHLORIDE
  30. VITAMIN D2 [Concomitant]
     Active Substance: ERGOCALCIFEROL
  31. ACYCLOVIR [ACICLOVIR] [Concomitant]
     Active Substance: ACYCLOVIR
  32. AMITRIPTYLINE [Concomitant]
     Active Substance: AMITRIPTYLINE
  33. ASPIRIN [ACETYLSALICYLIC ACID] [Concomitant]
     Active Substance: ASPIRIN
  34. AZITHROMYCIN ANHYDROUS. [Concomitant]
     Active Substance: AZITHROMYCIN ANHYDROUS
  35. CREON [Concomitant]
     Active Substance: PANCRELIPASE AMYLASE\PANCRELIPASE LIPASE\PANCRELIPASE PROTEASE
  36. LINEZOLID. [Concomitant]
     Active Substance: LINEZOLID
  37. MELOXICAM. [Concomitant]
     Active Substance: MELOXICAM
  38. KETOROLAC [Concomitant]
     Active Substance: KETOROLAC TROMETHAMINE
  39. OXYCODONE AND ACETAMINOPHEN [Concomitant]
     Active Substance: ACETAMINOPHEN\OXYCODONE HYDROCHLORIDE
  40. THERA-M [Concomitant]
  41. TRAZODONE [Concomitant]
     Active Substance: TRAZODONE HYDROCHLORIDE
  42. NORVIR [Concomitant]
     Active Substance: RITONAVIR
  43. TIVICAY [Concomitant]
     Active Substance: DOLUTEGRAVIR SODIUM
  44. AMOXICILLIN + CLAVULANIC ACID [Concomitant]
     Active Substance: AMOXICILLIN\CLAVULANIC ACID
  45. CEPHALEXIN [CEFALEXIN] [Concomitant]
     Active Substance: CEPHALEXIN
  46. CIPROFLOXACIN. [Concomitant]
     Active Substance: CIPROFLOXACIN
  47. KEPPRA [Concomitant]
     Active Substance: LEVETIRACETAM
  48. LYRICA [Concomitant]
     Active Substance: PREGABALIN
  49. NAPROXEN. [Concomitant]
     Active Substance: NAPROXEN
  50. DESCOVY [Concomitant]
     Active Substance: EMTRICITABINE\TENOFOVIR ALAFENAMIDE FUMARATE
  51. ISENTRESS [Concomitant]
     Active Substance: RALTEGRAVIR POTASSIUM
  52. PREZCOBIX [Concomitant]
     Active Substance: COBICISTAT\DARUNAVIR ETHANOLATE
  53. DUONEB [Concomitant]
     Active Substance: ALBUTEROL SULFATE\IPRATROPIUM BROMIDE
  54. NEURONTIN [Concomitant]
     Active Substance: GABAPENTIN
  55. FLUCONAZOLE. [Concomitant]
     Active Substance: FLUCONAZOLE

REACTIONS (17)
  - Chronic kidney disease [Not Recovered/Not Resolved]
  - Anhedonia [Not Recovered/Not Resolved]
  - Acute kidney injury [Not Recovered/Not Resolved]
  - Depression [Not Recovered/Not Resolved]
  - Impaired work ability [Not Recovered/Not Resolved]
  - Pain [Not Recovered/Not Resolved]
  - Renal failure [Not Recovered/Not Resolved]
  - Loss of personal independence in daily activities [Not Recovered/Not Resolved]
  - Fear [Not Recovered/Not Resolved]
  - Fatigue [Not Recovered/Not Resolved]
  - Emotional distress [Not Recovered/Not Resolved]
  - Mobility decreased [Not Recovered/Not Resolved]
  - Osteoporosis [Unknown]
  - Quality of life decreased [Not Recovered/Not Resolved]
  - Decreased activity [Not Recovered/Not Resolved]
  - Economic problem [Not Recovered/Not Resolved]
  - Anxiety [Not Recovered/Not Resolved]

NARRATIVE: CASE EVENT DATE: 2015
